FAERS Safety Report 21703663 (Version 9)
Quarter: 2023Q2

REPORT INFORMATION
  Report Type: Spontaneous
  Country: CA (occurrence: CA)
  Receive Date: 20221209
  Receipt Date: 20230411
  Transmission Date: 20230722
  Serious: Yes (Hospitalization, Other)
  Sender: FDA-Public Use
  Company Number: CA-CELLTRION INC.-2022CA016753

PATIENT

DRUGS (6)
  1. INFLECTRA [Suspect]
     Active Substance: INFLIXIMAB-DYYB
     Indication: Crohn^s disease
     Dosage: 400 MG, WEEK 0. HOSPITAL INFUSION
     Route: 042
     Dates: start: 20220907, end: 20220907
  2. INFLECTRA [Suspect]
     Active Substance: INFLIXIMAB-DYYB
     Dosage: 300 MG, Q2,6 WEEKS, THEN EVERY 8 WEEKS
     Route: 042
     Dates: start: 20220923, end: 20221021
  3. INFLECTRA [Suspect]
     Active Substance: INFLIXIMAB-DYYB
     Dosage: 300 MG, Q2,6 WEEKS, THEN EVERY 8 WEEKS
     Route: 042
     Dates: start: 20221021
  4. INFLECTRA [Suspect]
     Active Substance: INFLIXIMAB-DYYB
     Dosage: 300 MG, RESCUE DOSE
     Route: 042
     Dates: start: 20221207, end: 20221207
  5. INFLECTRA [Suspect]
     Active Substance: INFLIXIMAB-DYYB
     Dosage: 700 MG, EVERY 8 WEEKS
     Route: 042
     Dates: start: 20221216
  6. INFLECTRA [Suspect]
     Active Substance: INFLIXIMAB-DYYB
     Dosage: 700 MG, EVERY 8 WEEKS
     Route: 042
     Dates: start: 20221221

REACTIONS (18)
  - Condition aggravated [Not Recovered/Not Resolved]
  - Gastrointestinal carcinoma [Recovering/Resolving]
  - Appendicectomy [Recovering/Resolving]
  - Drug ineffective [Not Recovered/Not Resolved]
  - Off label use [Unknown]
  - Off label use [Unknown]
  - Intentional product use issue [Unknown]
  - Fatigue [Not Recovered/Not Resolved]
  - Muscle spasms [Unknown]
  - Abdominal distension [Unknown]
  - Back pain [Unknown]
  - Insomnia [Unknown]
  - Pruritus [Unknown]
  - Mouth ulceration [Not Recovered/Not Resolved]
  - Tooth fracture [Not Recovered/Not Resolved]
  - Malaise [Not Recovered/Not Resolved]
  - Drug level above therapeutic [Unknown]
  - Diarrhoea [Unknown]

NARRATIVE: CASE EVENT DATE: 20220101
